FAERS Safety Report 15203251 (Version 2)
Quarter: 2018Q3

REPORT INFORMATION
  Report Type: Report from Study
  Country: GB (occurrence: GB)
  Receive Date: 20180726
  Receipt Date: 20180730
  Transmission Date: 20181010
  Serious: Yes (Other)
  Sender: FDA-Public Use
  Company Number: GB-UCBSA-2017051177

PATIENT
  Sex: Female

DRUGS (2)
  1. CERTOLIZUMAB PEGOL [Suspect]
     Active Substance: CERTOLIZUMAB PEGOL
     Indication: OFF LABEL USE
     Dosage: 200 MG, EV 2 WEEKS(QOW)
     Route: 058
  2. CERTOLIZUMAB PEGOL [Suspect]
     Active Substance: CERTOLIZUMAB PEGOL
     Indication: BEHCET^S SYNDROME
     Dosage: 400 MG, EV 2 WEEKS(QOW)/SHE USED 2 INJECTIONS AND THE SAME AGAIN FOR SECOND DATE
     Route: 058
     Dates: start: 201711

REACTIONS (8)
  - Cardiomegaly [Unknown]
  - Behcet^s syndrome [Unknown]
  - Product quality issue [Unknown]
  - Drug dose omission [Unknown]
  - Adverse event [Unknown]
  - Product storage error [Unknown]
  - Drug ineffective for unapproved indication [Unknown]
  - Off label use [Unknown]

NARRATIVE: CASE EVENT DATE: 2017
